FAERS Safety Report 4541599-4 (Version None)
Quarter: 2004Q4

REPORT INFORMATION
  Report Type: 
  Country: None (occurrence: None)
  Receive Date: 20041227
  Receipt Date: 20041208
  Transmission Date: 20050328
  Serious: Yes (Other)
  Sender: FDA-Public Use
  Company Number: B0359982D

PATIENT
  Age: 28 Year
  Sex: Female

DRUGS (5)
  1. ERYTHROMYCIN [Suspect]
     Dosage: 500 MG/ THREE TIMES OER DAY
     Route: 048
  2. MIFEPRISTONE [Concomitant]
  3. DINOPROSTONE [Concomitant]
  4. MISOPROSTOL [Concomitant]
  5. PREDNISOLONE [Concomitant]

REACTIONS (5)
  - CAESAREAN SECTION [None]
  - DRUG EXPOSURE DURING PREGNANCY [None]
  - GESTATIONAL DIABETES [None]
  - INTRA-UTERINE DEATH [None]
  - OLIGOHYDRAMNIOS [None]
